FAERS Safety Report 5689073-6 (Version None)
Quarter: 2008Q1

REPORT INFORMATION
  Report Type: 
  Country: None (occurrence: None)
  Receive Date: 20080331
  Receipt Date: 20070205
  Transmission Date: 20080703
  Serious: Yes (Death, Other)
  Sender: FDA-Public Use
  Company Number: IR-ROCHE-481404

PATIENT
  Age: 49 Year
  Sex: Female

DRUGS (1)
  1. CEFTRIAXONE SODIUM [Suspect]
     Indication: PYELONEPHRITIS
     Route: 030

REACTIONS (7)
  - CARDIO-RESPIRATORY ARREST [None]
  - CONVULSION [None]
  - DEATH [None]
  - HAEMATURIA [None]
  - HYPOXIC ENCEPHALOPATHY [None]
  - LOSS OF CONSCIOUSNESS [None]
  - PNEUMONIA ASPIRATION [None]
